FAERS Safety Report 16222111 (Version 1)
Quarter: 2019Q2

REPORT INFORMATION
  Report Type: Spontaneous
  Country: US (occurrence: US)
  Receive Date: 20190422
  Receipt Date: 20190422
  Transmission Date: 20190711
  Serious: Yes (Hospitalization, Other)
  Sender: FDA-Public Use
  Company Number: US-SA-2019SA108376

PATIENT
  Age: 62 Year
  Sex: Male

DRUGS (2)
  1. FLUDROCORTISONE [Suspect]
     Active Substance: FLUDROCORTISONE
     Indication: ADDISON^S DISEASE
     Dosage: UNK
  2. HYDROCORTISONE SALT NOT SPECIFIED [Suspect]
     Active Substance: HYDROCORTISONE
     Indication: ADDISON^S DISEASE
     Dosage: UNK

REACTIONS (9)
  - Cardio-respiratory distress [Recovering/Resolving]
  - Dyspnoea [Recovering/Resolving]
  - Acute myocardial infarction [Recovering/Resolving]
  - Tachycardia [Recovering/Resolving]
  - Treatment noncompliance [Recovering/Resolving]
  - Adrenocortical insufficiency acute [Recovering/Resolving]
  - Hypotension [Recovering/Resolving]
  - Stress cardiomyopathy [Recovering/Resolving]
  - Ventricular fibrillation [Recovering/Resolving]
